FAERS Safety Report 6360600-9 (Version None)
Quarter: 2009Q3

REPORT INFORMATION
  Report Type: 
  Country: None (occurrence: None)
  Receive Date: 20090915
  Receipt Date: 20090903
  Transmission Date: 20100115
  Serious: Yes (Hospitalization)
  Sender: FDA-Public Use
  Company Number: 237947J08USA

PATIENT
  Age: 30 Year
  Sex: Female
  Weight: 54 kg

DRUGS (6)
  1. REBIF [Suspect]
     Indication: MULTIPLE SCLEROSIS
     Dosage: 44 MCG, 3 IN 1 WEEKS, SUBCUTANEOUS, 44 MCG, 3 IN 1 WEEKS, SUBCUTANEOUS
     Route: 058
     Dates: start: 20050805, end: 20080801
  2. REBIF [Suspect]
     Indication: MULTIPLE SCLEROSIS
     Dosage: 44 MCG, 3 IN 1 WEEKS, SUBCUTANEOUS, 44 MCG, 3 IN 1 WEEKS, SUBCUTANEOUS
     Route: 058
     Dates: start: 20080822
  3. SOLU-MEDROL [Suspect]
     Indication: MULTIPLE SCLEROSIS
     Dosage: INTRAVENOUS, INTRAVENOUS, INTRAVENOUS
     Route: 042
     Dates: start: 20080101, end: 20080101
  4. SOLU-MEDROL [Suspect]
     Indication: MULTIPLE SCLEROSIS
     Dosage: INTRAVENOUS, INTRAVENOUS, INTRAVENOUS
     Route: 042
     Dates: start: 20060101
  5. SOLU-MEDROL [Suspect]
     Indication: MULTIPLE SCLEROSIS
     Dosage: INTRAVENOUS, INTRAVENOUS, INTRAVENOUS
     Route: 042
     Dates: start: 20080704
  6. ADDERALL (OBETROL) [Concomitant]

REACTIONS (9)
  - CONDITION AGGRAVATED [None]
  - CONSTIPATION [None]
  - DECREASED APPETITE [None]
  - DYSPAREUNIA [None]
  - FAECAL INCONTINENCE [None]
  - HYPERTONIC BLADDER [None]
  - MULTIPLE SCLEROSIS [None]
  - OSTEONECROSIS [None]
  - PERONEAL NERVE PALSY [None]
